FAERS Safety Report 8493908-1 (Version None)
Quarter: 2012Q3

REPORT INFORMATION
  Report Type: 
  Country: None (occurrence: None)
  Receive Date: 20120708
  Receipt Date: 20120705
  Transmission Date: 20120928
  Serious: Yes (Death, Other)
  Sender: FDA-Public Use
  Company Number: CH-BAYER-2012-066573

PATIENT
  Age: 83 Year
  Sex: Male
  Weight: 57 kg

DRUGS (7)
  1. ATACAND [Concomitant]
     Dosage: 8 MG, QD
     Route: 048
  2. CEFUROXIME [Concomitant]
     Dosage: 500 MG, BID
     Route: 048
     Dates: start: 20120520, end: 20120522
  3. ASPIRIN [Suspect]
     Dosage: 100 MG, QD
     Route: 048
     Dates: end: 20120522
  4. PANTOPRAZOLE [Concomitant]
     Dosage: 20 MG, QD
     Route: 048
  5. SINTROM [Interacting]
     Indication: CARDIAC FAILURE
     Dosage: 1 DF, QD
     Route: 048
     Dates: end: 20120522
  6. CORDARONE [Concomitant]
     Dosage: 200 MG, QD
  7. OPIUM/NALOXONE TAB [Concomitant]
     Dosage: 15 MG, QD
     Route: 048

REACTIONS (5)
  - THERAPEUTIC RESPONSE INCREASED [None]
  - CARDIAC FAILURE [None]
  - HYPOTENSION [None]
  - HAEMORRHAGIC ANAEMIA [None]
  - GASTROINTESTINAL HAEMORRHAGE [None]
